FAERS Safety Report 7904422-3 (Version None)
Quarter: 2011Q4

REPORT INFORMATION
  Report Type: 
  Country: None (occurrence: None)
  Receive Date: 20111109
  Receipt Date: 20111102
  Transmission Date: 20120403
  Serious: Yes (Other)
  Sender: FDA-Public Use
  Company Number: US-BAYER-2011-106953

PATIENT

DRUGS (2)
  1. BETASERON [Suspect]
  2. NATALIZUMAB [Concomitant]
     Dosage: UNK

REACTIONS (2)
  - HYPERSENSITIVITY [None]
  - BLOOD IMMUNOGLOBULIN G DECREASED [None]
